FAERS Safety Report 19502821 (Version 1)
Quarter: 2021Q3

REPORT INFORMATION
  Report Type: Report from Study
  Country: US (occurrence: US)
  Receive Date: 20210707
  Receipt Date: 20210707
  Transmission Date: 20211014
  Serious: Yes (Other)
  Sender: FDA-Public Use
  Company Number: US-BAYER-2020-236164

PATIENT
  Age: 79 Year
  Sex: Male

DRUGS (1)
  1. NUBEQA [Suspect]
     Active Substance: DAROLUTAMIDE
     Indication: HORMONE-REFRACTORY PROSTATE CANCER
     Dosage: 2 DF, BID
     Dates: start: 20201028, end: 20210610

REACTIONS (2)
  - Laboratory test abnormal [None]
  - Product dose omission issue [None]

NARRATIVE: CASE EVENT DATE: 20201028
